FAERS Safety Report 12870792 (Version 1)
Quarter: 2016Q4

REPORT INFORMATION
  Report Type: Spontaneous
  Country: US (occurrence: US)
  Receive Date: 20161021
  Receipt Date: 20161021
  Transmission Date: 20170207
  Serious: No
  Sender: FDA-Public Use
  Company Number: None

PATIENT
  Age: 72 Year
  Sex: Female
  Weight: 65.83 kg

DRUGS (14)
  1. EYE DROPS [Concomitant]
     Active Substance: TETRAHYDROZOLINE HYDROCHLORIDE
  2. COLLAGEN [Concomitant]
     Active Substance: COLLAGEN
  3. PREDNISOLONE ACETATE. [Concomitant]
     Active Substance: PREDNISOLONE ACETATE
  4. OMEPRAZOLE. [Concomitant]
     Active Substance: OMEPRAZOLE
  5. CALCIUM [Concomitant]
     Active Substance: CALCIUM
  6. VITAMIN B COMPLEX [Concomitant]
     Active Substance: CYANOCOBALAMIN\DEXPANTHENOL\NIACINAMIDE\PYRIDOXINE HYDROCHLORIDE\RIBOFLAVIN 5^-PHOSPHATE SODIUM\THIAMINE HYDROCHLORIDE\VITAMIN B COMPLEX
  7. VITAMIN E [Concomitant]
     Active Substance: .ALPHA.-TOCOPHEROL
  8. ALAWAY [Concomitant]
     Active Substance: KETOTIFEN FUMARATE
  9. DILTIAZEM. [Concomitant]
     Active Substance: DILTIAZEM
  10. 2000 D [Concomitant]
  11. HYOSCYAMINE SULFATE .125MG [Suspect]
     Active Substance: HYOSCYAMINE
     Indication: DIARRHOEA
     Route: 048
     Dates: start: 20160416, end: 20160422
  12. LISINOPRIL. [Concomitant]
     Active Substance: LISINOPRIL
  13. RESTASIS [Concomitant]
     Active Substance: CYCLOSPORINE
  14. MELATONIN [Concomitant]
     Active Substance: MELATONIN

REACTIONS (3)
  - Feeling abnormal [None]
  - Decreased activity [None]
  - Staring [None]
